FAERS Safety Report 6106567-X (Version None)
Quarter: 2009Q1

REPORT INFORMATION
  Report Type: 
  Country: None (occurrence: None)
  Receive Date: 20090304
  Receipt Date: 20090215
  Transmission Date: 20090719
  Serious: Yes (Other)
  Sender: FDA-Public Use
  Company Number: 2009S1002853

PATIENT
  Sex: Male
  Weight: 3.82 kg

DRUGS (3)
  1. STAVUDINE [Suspect]
     Dosage: TRANSPLACENTAL
     Route: 064
  2. LAMIVUDINE [Suspect]
     Dosage: TRANSPLACENTAL
     Route: 064
  3. EFAVIRENZ [Suspect]
     Dosage: TRANSPLACENTAL
     Route: 064

REACTIONS (6)
  - BRACHIAL PLEXUS INJURY [None]
  - ERB'S PALSY [None]
  - HYPOTONIA NEONATAL [None]
  - MATERNAL DRUGS AFFECTING FOETUS [None]
  - OBSTETRIC PROCEDURE COMPLICATION [None]
  - VACUUM EXTRACTOR DELIVERY [None]
